FAERS Safety Report 8380071-0 (Version None)
Quarter: 2012Q2

REPORT INFORMATION
  Report Type: 
  Country: None (occurrence: None)
  Receive Date: 20120523
  Receipt Date: 20120510
  Transmission Date: 20120825
  Serious: Yes (Other)
  Sender: FDA-Public Use
  Company Number: US-GLAXOSMITHKLINE-A0977977A

PATIENT
  Sex: Female

DRUGS (1)
  1. VERAMYST [Suspect]
     Indication: MIDDLE EAR EFFUSION
     Dates: start: 20120508

REACTIONS (8)
  - VERTIGO [None]
  - VOMITING [None]
  - ABASIA [None]
  - DIARRHOEA [None]
  - NAUSEA [None]
  - OFF LABEL USE [None]
  - LOSS OF CONSCIOUSNESS [None]
  - MOVEMENT DISORDER [None]
